FAERS Safety Report 7629374-5 (Version None)
Quarter: 2011Q3

REPORT INFORMATION
  Report Type: 
  Country: None (occurrence: None)
  Receive Date: 20110722
  Receipt Date: 20110712
  Transmission Date: 20111222
  Serious: Yes (Hospitalization)
  Sender: FDA-Public Use
  Company Number: US-JNJFOC-20110706801

PATIENT
  Sex: Male
  Weight: 42.3 kg

DRUGS (4)
  1. ASACOL [Concomitant]
  2. REMICADE [Suspect]
     Indication: COLITIS ULCERATIVE
     Route: 042
     Dates: start: 20110411
  3. MERCAPTOPURINE [Suspect]
     Indication: PRODUCT USED FOR UNKNOWN INDICATION
  4. REMICADE [Suspect]
     Route: 042
     Dates: start: 20110702

REACTIONS (1)
  - PANCREATITIS [None]
